FAERS Safety Report 4470611-6 (Version None)
Quarter: 2004Q4

REPORT INFORMATION
  Report Type: 
  Country: None (occurrence: None)
  Receive Date: 20041011
  Receipt Date: 20040928
  Transmission Date: 20050328
  Serious: Yes (Hospitalization, Disabling)
  Sender: FDA-Public Use
  Company Number: GB-BRISTOL-MYERS SQUIBB COMPANY-12720173

PATIENT
  Age: 87 Year
  Sex: Male

DRUGS (5)
  1. SINEMET CR [Suspect]
     Indication: PARKINSONISM
     Route: 048
     Dates: start: 20040810, end: 20040818
  2. ALENDRONATE SODIUM [Concomitant]
  3. ASPIRIN [Concomitant]
  4. ADCAL-D3 [Concomitant]
  5. LACTULOSE [Concomitant]

REACTIONS (2)
  - JAUNDICE [None]
  - LIVER FUNCTION TEST ABNORMAL [None]
